FAERS Safety Report 16255095 (Version 1)
Quarter: 2019Q2

REPORT INFORMATION
  Report Type: Spontaneous
  Country: GB (occurrence: GB)
  Receive Date: 20190430
  Receipt Date: 20190430
  Transmission Date: 20190711
  Serious: Yes (Life-Threatening, Hospitalization)
  Sender: FDA-Public Use
  Company Number: GB-TEVA-2019-GB-1043389

PATIENT
  Age: 12 Year
  Sex: Female

DRUGS (1)
  1. SALBUTAMOL [Suspect]
     Active Substance: ALBUTEROL
     Dosage: 1MICROGRAM/KG/MIN?500MICROGRAMS/1ML
     Route: 042

REACTIONS (4)
  - Feeling jittery [Recovered/Resolved]
  - Metabolic acidosis [Recovered/Resolved]
  - Cardiovascular insufficiency [Recovered/Resolved]
  - Tachycardia [Recovered/Resolved]
